FAERS Safety Report 8893487 (Version 1)
Quarter: 2012Q4

REPORT INFORMATION
  Report Type: 
  Country: US (occurrence: US)
  Receive Date: 20121107
  Receipt Date: 20121107
  Transmission Date: 20130627
  Serious: No
  Sender: FDA-Public Use
  Company Number: US-AMGEN-USASP2011052431

PATIENT
  Age: 64 Year
  Sex: Female

DRUGS (21)
  1. ENBREL [Suspect]
     Indication: PRODUCT USED FOR UNKNOWN INDICATION
     Dosage: 50 mg, qwk
     Route: 058
  2. PLAQUENIL                          /00072602/ [Concomitant]
     Dosage: 200 mg, UNK
     Route: 048
  3. PREMARIN [Concomitant]
     Dosage: 0.625 mg, UNK
     Route: 048
  4. FLECAINIDE [Concomitant]
     Dosage: 50 mg, UNK
     Route: 048
  5. METHOTREXATE [Concomitant]
     Dosage: 2.5 mg, UNK
     Route: 048
  6. LIPITOR [Concomitant]
     Dosage: 10 mg, UNK
     Route: 048
  7. QUINAPRIL [Concomitant]
     Dosage: 5 mg, UNK
     Route: 048
  8. FOLIC ACID [Concomitant]
     Dosage: 1 mg, UNK
     Route: 048
  9. VAGIFEM [Concomitant]
     Dosage: 10 mug, UNK
     Route: 048
  10. VENTOLIN HFA [Concomitant]
  11. ADVAIR [Concomitant]
  12. VALTREX [Concomitant]
     Dosage: 500 mg, UNK
     Route: 048
  13. KEFLEX                             /00145501/ [Concomitant]
     Dosage: 500 mg, UNK
     Route: 048
  14. HYDROCODONE W/APAP [Concomitant]
     Dosage: UNK mg, UNK
     Route: 048
  15. MULTIVITAMIN                       /00097801/ [Concomitant]
     Dosage: UNK
     Route: 048
  16. OMNARIS [Concomitant]
  17. BLACK COHOSH                       /01456805/ [Concomitant]
     Dosage: 40 mg, UNK
     Route: 048
  18. LEVOCETIRIZINE DIHYDROCHLORIDE [Concomitant]
     Dosage: 5 mg, UNK
     Route: 048
  19. ASA [Concomitant]
     Dosage: 81 mg, UNK
     Route: 048
  20. CALCIUM +VIT D [Concomitant]
     Route: 048
  21. ACIPHEX [Concomitant]
     Dosage: 20 mg, UNK
     Route: 048

REACTIONS (2)
  - Oropharyngeal pain [Unknown]
  - Sinusitis [Unknown]
